FAERS Safety Report 10373723 (Version 1)
Quarter: 2014Q1

REPORT INFORMATION
  Report Type: Spontaneous
  Country: US (occurrence: None)
  Receive Date: 20140306
  Receipt Date: 20140306
  Transmission Date: 20141002
  Serious: Yes (Hospitalization)
  Sender: FDA-Public Use
  Company Number: 163-21880-13072073

PATIENT
  Age: 73 Year
  Sex: Male
  Weight: 64.41 kg

DRUGS (13)
  1. REVLIMID (LENALIDOMIDE) (15 MILLIGRAM, CAPSULES) [Suspect]
     Indication: PLASMA CELL MYELOMA
     Route: 048
     Dates: start: 20120107
  2. DEXAMETHASONE (DEXAMETHASONE) (UNKNOWN) [Concomitant]
  3. ZOMETA (ZOLEDRONIC ACID) (UNKNOWN) [Concomitant]
  4. ONDANSETRON HCL (ONDANSETRON HYDROCHLORIDE) (UNKNOWN) [Concomitant]
  5. VENTOLIN HFA (SALBUTAMOL SULFATE) (UNKNOWN) [Concomitant]
  6. ADVAIR DISKUS (SERETIDE MITE) (UNKNOWN) [Concomitant]
  7. LOVAZA (OMEGA-3 MARINE TRIGLYCERIDES) (CAPSULES) [Concomitant]
  8. IBUPROFEN (IBUPROFEN) (CAPSULES) [Concomitant]
  9. LOSARTAN POTASSIUM (LOSARTAN POTASSIUM) (UNKNOWN) [Concomitant]
  10. GLUCOSAMINE CHONDROITIN (GLUCOSAMINE W/CHONDROITIN SULFATE) (UNKNOWN) [Concomitant]
  11. TYLENOL (PARACETAMOL) (TABLETS) [Concomitant]
  12. SPIRIVA (TIOTROPIUM BROMIDE) (UNKNOWN) [Concomitant]
  13. LEVOTHYROXINE (LEVOTHYROXINE SODIUM) (UNKNOWN) [Concomitant]

REACTIONS (2)
  - Pyrexia [None]
  - Diarrhoea [None]
